FAERS Safety Report 4673548-2 (Version None)
Quarter: 2005Q2

REPORT INFORMATION
  Report Type: 
  Country: None (occurrence: None)
  Receive Date: 20050523
  Receipt Date: 20050511
  Transmission Date: 20051028
  Serious: Yes (Other)
  Sender: FDA-Public Use
  Company Number: 200512024BCC

PATIENT
  Age: 75 Year
  Sex: Female
  Weight: 72.5755 kg

DRUGS (12)
  1. PHILLIPS MILK OF MAGNESIA LIQUID ORIGINAL [Suspect]
     Indication: LAXATIVE SUPPORTIVE CARE
     Dosage: 24000 MG, ONCE, ORAL
     Route: 048
     Dates: start: 20050401
  2. PHILLIPS MILK OF MAGNESIA LIQUID ORIGINAL [Suspect]
     Indication: LAXATIVE SUPPORTIVE CARE
     Dosage: 24000 MG, ONCE, ORAL
     Route: 048
     Dates: start: 20050511
  3. LASIX [Concomitant]
  4. POTASSIUM CHLORIDE [Concomitant]
  5. NORVASC [Concomitant]
  6. LISINOPRIL [Concomitant]
  7. ATENOLOL [Concomitant]
  8. CLONIDINE [Concomitant]
  9. LIPITOR [Concomitant]
  10. ECOTRIN [Concomitant]
  11. ARTHROTEC [Concomitant]
  12. PHENERGAN [Concomitant]

REACTIONS (2)
  - BLOOD PRESSURE DECREASED [None]
  - VOMITING [None]
